FAERS Safety Report 5258283-4 (Version None)
Quarter: 2007Q1

REPORT INFORMATION
  Report Type: 
  Country: None (occurrence: None)
  Receive Date: 20070308
  Receipt Date: 20070302
  Transmission Date: 20070707
  Serious: Yes (Death)
  Sender: FDA-Public Use
  Company Number: BEWYE496503AUG06

PATIENT
  Age: 44 Year
  Sex: Female
  Weight: 46.5 kg

DRUGS (6)
  1. GEMTUZUMAB OZOGAMICIN [Suspect]
     Dates: start: 20060317, end: 20060317
  2. TPN ELECTROLYTES IN PLASTIC CONTAINER [Concomitant]
     Dosage: UNKNOWN
     Dates: start: 20060412, end: 20060415
  3. DIFLUCAN [Concomitant]
     Indication: ANTIFUNGAL PROPHYLAXIS
     Dosage: UNKNOWN
     Dates: start: 20060412, end: 20060415
  4. LARGACTIL [Concomitant]
     Dosage: UNKNOWN
     Dates: start: 20060411, end: 20060415
  5. IDARUBICIN HCL [Suspect]
     Dates: start: 20060311, end: 20060315
  6. CYTARABINE [Suspect]
     Dates: start: 20060311, end: 20060320

REACTIONS (6)
  - CEREBRAL HAEMORRHAGE [None]
  - COMA [None]
  - LYMPHOCYTE PERCENTAGE INCREASED [None]
  - NEUTROPHIL PERCENTAGE DECREASED [None]
  - PLATELET COUNT DECREASED [None]
  - WHITE BLOOD CELL COUNT DECREASED [None]
